FAERS Safety Report 5314033-4 (Version None)
Quarter: 2007Q2

REPORT INFORMATION
  Report Type: 
  Country: None (occurrence: None)
  Receive Date: 20070501
  Receipt Date: 20070417
  Transmission Date: 20071010
  Serious: Yes (Other)
  Sender: FDA-Public Use
  Company Number: JP-ROCHE-486840

PATIENT
  Age: 4 Year
  Sex: Male
  Weight: 16 kg

DRUGS (6)
  1. TAMIFLU [Suspect]
     Indication: INFLUENZA
     Dosage: FORM REPORTED AS DRY SYRUP.
     Route: 048
     Dates: start: 20070228, end: 20070228
  2. ASVERIN [Concomitant]
     Route: 048
     Dates: start: 20070227, end: 20070301
  3. PERIACTIN [Concomitant]
     Route: 048
     Dates: start: 20070227, end: 20070301
  4. BISOLVON [Concomitant]
     Route: 048
     Dates: start: 20070227, end: 20070301
  5. CEFROXADINE [Concomitant]
     Dosage: REPORTED TRADENAME CEFTHAN
     Route: 048
     Dates: start: 20070227, end: 20070301
  6. ENTERONON [Concomitant]
     Route: 048
     Dates: start: 20070227, end: 20070301

REACTIONS (1)
  - ABNORMAL BEHAVIOUR [None]
